FAERS Safety Report 10978826 (Version 1)
Quarter: 2015Q1

REPORT INFORMATION
  Report Type: Spontaneous
  Country: US (occurrence: None)
  Receive Date: 20150226
  Receipt Date: 20150226
  Transmission Date: 20150721
  Serious: No
  Sender: FDA-Public Use
  Company Number: TPA2009A02653

PATIENT
  Age: 6 Decade
  Sex: Male

DRUGS (3)
  1. ULORIC [Suspect]
     Active Substance: FEBUXOSTAT
     Indication: GOUT
     Route: 048
     Dates: start: 20090901, end: 20090904
  2. COCHICINE [Concomitant]
  3. ULORIC [Suspect]
     Active Substance: FEBUXOSTAT
     Indication: GOUTY TOPHUS
     Route: 048
     Dates: start: 20090901, end: 20090904

REACTIONS (1)
  - Myalgia [None]

NARRATIVE: CASE EVENT DATE: 20090903
